FAERS Safety Report 4886957-3 (Version None)
Quarter: 2006Q1

REPORT INFORMATION
  Report Type: 
  Country: None (occurrence: None)
  Receive Date: 20060120
  Receipt Date: 20050916
  Transmission Date: 20060701
  Serious: Yes (Hospitalization, Disabling)
  Sender: FDA-Public Use
  Company Number: US-MERCK-0509USA02404

PATIENT
  Age: 58 Year
  Sex: Male
  Weight: 109 kg

DRUGS (9)
  1. VIOXX [Suspect]
     Indication: ARTHRITIS
     Route: 048
     Dates: start: 20000601, end: 20011201
  2. ALLOPURINOL [Concomitant]
     Indication: GOUT
     Route: 065
  3. AVANDIA [Concomitant]
     Indication: DIABETES MELLITUS
     Route: 065
  4. DIAZEPAM [Concomitant]
     Route: 065
     Dates: start: 20000101
  5. GLUCOPHAGE [Concomitant]
     Indication: DIABETES MELLITUS
     Route: 065
  6. PRAVACHOL [Concomitant]
     Route: 065
     Dates: start: 20000101
  7. ASPIRIN [Concomitant]
     Route: 065
  8. ZOLOFT [Concomitant]
     Indication: DEPRESSION
     Route: 065
     Dates: start: 19930101
  9. GLIPIZIDE [Concomitant]
     Route: 065

REACTIONS (13)
  - ANXIETY [None]
  - BLOOD TRIGLYCERIDES INCREASED [None]
  - BRONCHITIS [None]
  - CORONARY ARTERY DISEASE [None]
  - DEPRESSION [None]
  - FALL [None]
  - GOUT [None]
  - HEAD INJURY [None]
  - JOINT INJURY [None]
  - LOSS OF CONSCIOUSNESS [None]
  - MYOCARDIAL INFARCTION [None]
  - NERVOUS SYSTEM DISORDER [None]
  - SURGERY [None]
